FAERS Safety Report 12133420 (Version 1)
Quarter: 2016Q1

REPORT INFORMATION
  Report Type: Spontaneous
  Country: JP (occurrence: JP)
  Receive Date: 20160301
  Receipt Date: 20160301
  Transmission Date: 20160526
  Serious: Yes (Hospitalization)
  Sender: FDA-Public Use
  Company Number: JP-SA-2015SA122930

PATIENT
  Age: 76 Year
  Sex: Male
  Weight: 66 kg

DRUGS (17)
  1. ELPLAT [Suspect]
     Active Substance: OXALIPLATIN
     Indication: COLON CANCER
     Route: 041
     Dates: start: 20150416, end: 20150416
  2. XELODA [Suspect]
     Active Substance: CAPECITABINE
     Indication: COLON CANCER
     Route: 048
     Dates: start: 20150129, end: 20150211
  3. EMEND [Concomitant]
     Active Substance: APREPITANT
     Dates: start: 20150226, end: 20150418
  4. ELPLAT [Suspect]
     Active Substance: OXALIPLATIN
     Indication: COLON CANCER
     Route: 041
     Dates: start: 20150326, end: 20150326
  5. XELODA [Suspect]
     Active Substance: CAPECITABINE
     Indication: COLON CANCER
     Route: 048
     Dates: start: 20150226, end: 20150311
  6. ELPLAT [Suspect]
     Active Substance: OXALIPLATIN
     Indication: COLON CANCER
     Route: 041
     Dates: start: 20150226, end: 20150226
  7. XELODA [Suspect]
     Active Substance: CAPECITABINE
     Indication: COLON CANCER
     Route: 048
     Dates: start: 20150416, end: 20150429
  8. XELODA [Suspect]
     Active Substance: CAPECITABINE
     Indication: COLON CANCER
     Route: 048
     Dates: start: 20150326, end: 20150408
  9. MEROPENEM. [Concomitant]
     Active Substance: MEROPENEM
     Dates: start: 20150514, end: 20150519
  10. LASIX [Concomitant]
     Active Substance: FUROSEMIDE
     Dates: start: 20150511, end: 20150709
  11. DEXART [Concomitant]
     Active Substance: DEXAMETHASONE SODIUM PHOSPHATE
     Dates: start: 20150108, end: 20150416
  12. ELPLAT [Suspect]
     Active Substance: OXALIPLATIN
     Indication: COLON CANCER
     Route: 041
     Dates: start: 20150129, end: 20150129
  13. ALOXI [Concomitant]
     Active Substance: PALONOSETRON HYDROCHLORIDE
     Dates: start: 20150108, end: 20150416
  14. ELPLAT [Suspect]
     Active Substance: OXALIPLATIN
     Indication: COLON CANCER
     Route: 041
     Dates: start: 20150108, end: 20150108
  15. XELODA [Suspect]
     Active Substance: CAPECITABINE
     Indication: COLON CANCER
     Route: 048
     Dates: start: 20150108, end: 20150121
  16. WYSTAL [Concomitant]
     Active Substance: CEFOPERAZONE SODIUM\SULBACTAM SODIUM
     Dates: start: 20150511, end: 20150513
  17. FUROSEMIDE. [Concomitant]
     Active Substance: FUROSEMIDE
     Dates: start: 20150512, end: 20150709

REACTIONS (8)
  - Hypoaesthesia [Unknown]
  - Splenomegaly [Not Recovered/Not Resolved]
  - Malaise [Unknown]
  - Enterocolitis [Recovered/Resolved]
  - Oedema peripheral [Unknown]
  - Ascites [Recovering/Resolving]
  - Diarrhoea [Unknown]
  - Decreased appetite [Unknown]

NARRATIVE: CASE EVENT DATE: 201501
